FAERS Safety Report 23342350 (Version 1)
Quarter: 2023Q4

REPORT INFORMATION
  Report Type: Spontaneous
  Country: EU (occurrence: None)
  Receive Date: 20231227
  Receipt Date: 20231227
  Transmission Date: 20240110
  Serious: Yes (Death)
  Sender: FDA-Public Use
  Company Number: None

PATIENT

DRUGS (2)
  1. BUPRENORPHINE HYDROCHLORIDE [Suspect]
     Active Substance: BUPRENORPHINE HYDROCHLORIDE
     Dates: end: 202210
  2. BROMAZEPAM [Suspect]
     Active Substance: BROMAZEPAM
     Dates: end: 202210

REACTIONS (2)
  - Asphyxia [Fatal]
  - Drug use disorder [Fatal]
